FAERS Safety Report 12997420 (Version 4)
Quarter: 2025Q3

REPORT INFORMATION
  Report Type: Spontaneous
  Country: US (occurrence: US)
  Receive Date: 20161205
  Receipt Date: 20250919
  Transmission Date: 20251020
  Serious: Yes (Other)
  Sender: AUROBINDO
  Company Number: US-AUROBINDO-AUR-APL-2016-14906

PATIENT
  Age: 54 Year
  Sex: Female

DRUGS (2)
  1. PREDNISONE [Interacting]
     Active Substance: PREDNISONE
     Indication: Familial dilated cardiomyopathy
     Route: 065
  2. CYCLOSPORINE [Interacting]
     Active Substance: CYCLOSPORINE
     Indication: Familial dilated cardiomyopathy
     Route: 065

REACTIONS (7)
  - Iliotibial band syndrome [Recovered/Resolved]
  - Tendon injury [Recovered/Resolved]
  - Pain [Recovered/Resolved]
  - Drug interaction [Recovered/Resolved]
  - Muscle rupture [Recovering/Resolving]
  - Fascial rupture [Recovering/Resolving]
  - Tendon rupture [Recovering/Resolving]
